FAERS Safety Report 4583986-4 (Version None)
Quarter: 2005Q1

REPORT INFORMATION
  Report Type: 
  Country: None (occurrence: None)
  Receive Date: 20050216
  Receipt Date: 20050204
  Transmission Date: 20050727
  Serious: Yes (Hospitalization)
  Sender: FDA-Public Use
  Company Number: DE-MERCK-0502DEU00051

PATIENT
  Age: 80 Year
  Sex: Male
  Weight: 76 kg

DRUGS (4)
  1. ZETIA [Suspect]
     Indication: HYPERLIPIDAEMIA
     Route: 048
     Dates: start: 20040901, end: 20041201
  2. MEVACOR [Concomitant]
     Route: 048
  3. AMIODARONE HYDROCHLORIDE [Concomitant]
     Indication: VENTRICULAR ARRHYTHMIA
     Route: 065
  4. HYDROCHLOROTHIAZIDE AND VALSARTAN [Concomitant]
     Route: 065

REACTIONS (4)
  - BLOOD CREATINE PHOSPHOKINASE INCREASED [None]
  - C-REACTIVE PROTEIN INCREASED [None]
  - MUSCULAR WEAKNESS [None]
  - MYALGIA [None]
